FAERS Safety Report 7167203-7 (Version None)
Quarter: 2010Q4

REPORT INFORMATION
  Report Type: 
  Country: None (occurrence: None)
  Receive Date: 20101216
  Receipt Date: 20101207
  Transmission Date: 20110411
  Serious: Yes (Other)
  Sender: FDA-Public Use
  Company Number: PHHY2010AU58187

PATIENT
  Sex: Female

DRUGS (1)
  1. STI571/CGP57148B T35717+TAB [Suspect]
     Indication: CHRONIC MYELOID LEUKAEMIA
     Dosage: 400 MG, UNK
     Route: 048
     Dates: start: 20100802

REACTIONS (10)
  - ANAEMIA [None]
  - DIARRHOEA [None]
  - FATIGUE [None]
  - GENERAL PHYSICAL HEALTH DETERIORATION [None]
  - HYPOTENSION [None]
  - IMPAIRED WORK ABILITY [None]
  - NAUSEA [None]
  - SUICIDAL BEHAVIOUR [None]
  - VOMITING [None]
  - WEIGHT INCREASED [None]
